FAERS Safety Report 17858098 (Version 1)
Quarter: 2020Q2

REPORT INFORMATION
  Report Type: Spontaneous
  Country: CZ (occurrence: CZ)
  Receive Date: 20200604
  Receipt Date: 20200604
  Transmission Date: 20200714
  Serious: Yes (Other)
  Sender: FDA-Public Use
  Company Number: CZ-BAUSCH-BL-2020-016171

PATIENT
  Age: 60 Year
  Sex: Male

DRUGS (7)
  1. PERINDOPRIL [Concomitant]
     Active Substance: PERINDOPRIL
     Indication: HYPERTENSION
  2. VINCRISTINE [Suspect]
     Active Substance: VINCRISTINE
     Indication: DIFFUSE LARGE B-CELL LYMPHOMA STAGE IV
     Dosage: 6 CYCLES OF R-CHOP THERAPY
     Route: 065
     Dates: start: 2008, end: 2008
  3. PREDNISOLONE. [Suspect]
     Active Substance: PREDNISOLONE
     Indication: DIFFUSE LARGE B-CELL LYMPHOMA STAGE IV
     Dosage: 6 CYCLES OF R-CHOP THERAPY
     Route: 065
     Dates: start: 2008, end: 2008
  4. RITUXIMAB. [Suspect]
     Active Substance: RITUXIMAB
     Indication: DIFFUSE LARGE B-CELL LYMPHOMA STAGE IV
     Dosage: 6 CYCLES OF R-CHOP THERAPY
     Route: 065
     Dates: start: 2008, end: 2008
  5. RITUXIMAB. [Suspect]
     Active Substance: RITUXIMAB
     Dosage: 2 CYCLES
     Route: 065
     Dates: start: 2008, end: 2008
  6. CYCLOPHOSPHAMIDE. [Suspect]
     Active Substance: CYCLOPHOSPHAMIDE
     Indication: DIFFUSE LARGE B-CELL LYMPHOMA STAGE IV
     Dosage: 6 CYCLES OF R-CHOP THERAPY
     Route: 065
     Dates: start: 2008, end: 2008
  7. DOXORUBICIN [Suspect]
     Active Substance: DOXORUBICIN
     Indication: DIFFUSE LARGE B-CELL LYMPHOMA STAGE IV
     Dosage: 6 CYCLES OF R-CHOP THERAPY
     Route: 065
     Dates: start: 2008, end: 2008

REACTIONS (2)
  - Infection [Unknown]
  - Neutropenia [Unknown]

NARRATIVE: CASE EVENT DATE: 2008
